FAERS Safety Report 13881954 (Version 2)
Quarter: 2017Q3

REPORT INFORMATION
  Report Type: Spontaneous
  Country: DE (occurrence: DE)
  Receive Date: 20170818
  Receipt Date: 20170825
  Transmission Date: 20171127
  Serious: Yes (Hospitalization)
  Sender: FDA-Public Use
  Company Number: GXKR2017DE004132

PATIENT
  Age: 65 Year
  Sex: Male

DRUGS (1)
  1. OXALIPLATIN HEXAL [Suspect]
     Active Substance: OXALIPLATIN
     Indication: COLON CANCER
     Dosage: 85 MG/M2, UNK
     Route: 041
     Dates: start: 20170425, end: 20170627

REACTIONS (5)
  - Colon cancer metastatic [Unknown]
  - Ileus [Unknown]
  - Malignant peritoneal neoplasm [Unknown]
  - Ascites [Unknown]
  - Acute abdomen [Unknown]

NARRATIVE: CASE EVENT DATE: 20170726
